FAERS Safety Report 19973762 (Version 1)
Quarter: 2021Q4

REPORT INFORMATION
  Report Type: Spontaneous
  Country: US (occurrence: US)
  Receive Date: 20211020
  Receipt Date: 20211020
  Transmission Date: 20220303
  Serious: Yes (Life-Threatening)
  Sender: FDA-Public Use
  Company Number: None

PATIENT
  Age: 53 Year
  Sex: Male
  Weight: 94 kg

DRUGS (2)
  1. BARICITINIB [Suspect]
     Active Substance: BARICITINIB
     Dates: start: 20211009, end: 20211020
  2. DEXAMETHASONE [Concomitant]
     Active Substance: DEXAMETHASONE
     Dates: start: 20211006, end: 20211015

REACTIONS (3)
  - Acute respiratory distress syndrome [None]
  - Acute kidney injury [None]
  - Acute myocardial infarction [None]

NARRATIVE: CASE EVENT DATE: 20211016
